FAERS Safety Report 7337997-6 (Version None)
Quarter: 2011Q1

REPORT INFORMATION
  Report Type: 
  Country: None (occurrence: None)
  Receive Date: 20110308
  Receipt Date: 20110302
  Transmission Date: 20110831
  Serious: Yes (Other)
  Sender: FDA-Public Use
  Company Number: US-ABBOTT-11P-163-0705956-00

PATIENT
  Sex: Male
  Weight: 80.812 kg

DRUGS (13)
  1. ALENDRONATE [Concomitant]
     Indication: OSTEOPOROSIS
  2. VENTOLIN [Concomitant]
     Indication: PRODUCT USED FOR UNKNOWN INDICATION
     Route: 055
  3. VITAMIN B6 [Concomitant]
     Indication: PRODUCT USED FOR UNKNOWN INDICATION
  4. HYDROCODONE [Concomitant]
     Indication: PAIN
  5. MULTI-VITAMIN [Concomitant]
     Indication: PRODUCT USED FOR UNKNOWN INDICATION
  6. VITAMIN B-12 [Concomitant]
     Indication: PRODUCT USED FOR UNKNOWN INDICATION
  7. GLUCOSAMINE [Concomitant]
     Indication: SUPPLEMENTATION THERAPY
  8. CYMBALTA [Concomitant]
     Indication: DEPRESSION
  9. CALCIUM W/VIT D [Concomitant]
     Indication: PRODUCT USED FOR UNKNOWN INDICATION
  10. LUTEIN [Concomitant]
     Indication: SUPPLEMENTATION THERAPY
  11. RUMADINE [Concomitant]
     Indication: EYE DISORDER
  12. HUMIRA [Suspect]
     Indication: RHEUMATOID ARTHRITIS
  13. PREDNISONE [Concomitant]
     Indication: RHEUMATOID ARTHRITIS

REACTIONS (4)
  - ATRIAL FIBRILLATION [None]
  - SKIN CANCER [None]
  - BLADDER CANCER [None]
  - BLOOD URINE [None]
